FAERS Safety Report 6143455-7 (Version None)
Quarter: 2009Q2

REPORT INFORMATION
  Report Type: 
  Country: None (occurrence: None)
  Receive Date: 20090403
  Receipt Date: 20090326
  Transmission Date: 20091009
  Serious: Yes (Hospitalization, Other)
  Sender: FDA-Public Use
  Company Number: PHHY2009JP07072

PATIENT
  Age: 49 Year
  Sex: Male

DRUGS (7)
  1. ZOMETA [Suspect]
     Indication: MULTIPLE MYELOMA
     Dosage: 4 MG, ONCE/SINGLE, 4 TIMES
     Route: 042
     Dates: start: 20070614, end: 20071206
  2. ZOMETA [Suspect]
     Indication: HYPERCALCAEMIA
  3. ALENDRONATE SODIUM [Suspect]
     Dosage: UNK
     Route: 048
     Dates: start: 20070616, end: 20070912
  4. ALENDRONATE SODIUM [Suspect]
     Dosage: UNK
     Route: 048
     Dates: start: 20080107, end: 20080226
  5. VINCRISTINE [Concomitant]
     Route: 048
  6. DOXORUBICIN HCL [Concomitant]
     Dosage: UNK
     Route: 048
  7. DEXAMETHASONE [Concomitant]
     Route: 048

REACTIONS (15)
  - ALANINE AMINOTRANSFERASE INCREASED [None]
  - ASPARTATE AMINOTRANSFERASE INCREASED [None]
  - BLOOD ALKALINE PHOSPHATASE INCREASED [None]
  - BLOOD UREA INCREASED [None]
  - BONE MARROW TRANSPLANT [None]
  - DIARRHOEA [None]
  - ELECTROCARDIOGRAM QT PROLONGED [None]
  - GAMMA-GLUTAMYLTRANSFERASE INCREASED [None]
  - GRAFT VERSUS HOST DISEASE [None]
  - HAEMODIALYSIS [None]
  - HYPOCALCAEMIA [None]
  - HYPOMAGNESAEMIA [None]
  - MALABSORPTION [None]
  - RENAL IMPAIRMENT [None]
  - TETANY [None]
